FAERS Safety Report 5378193-1 (Version None)
Quarter: 2007Q3

REPORT INFORMATION
  Report Type: 
  Country: None (occurrence: None)
  Receive Date: 20070705
  Receipt Date: 20070625
  Transmission Date: 20080115
  Serious: Yes (Other)
  Sender: FDA-Public Use
  Company Number: AU-JNJFOC-20070603491

PATIENT
  Sex: Male
  Weight: 58 kg

DRUGS (1)
  1. DURAGESIC-100 [Suspect]
     Indication: ACCIDENTAL EXPOSURE
     Route: 062

REACTIONS (5)
  - ACCIDENTAL EXPOSURE [None]
  - ACCIDENTAL OVERDOSE [None]
  - DIZZINESS [None]
  - PALPITATIONS [None]
  - PHARMACEUTICAL PRODUCT COMPLAINT [None]
